FAERS Safety Report 4358263-7 (Version None)
Quarter: 2004Q2

REPORT INFORMATION
  Report Type: 
  Country: None (occurrence: None)
  Receive Date: 20040511
  Receipt Date: 20040511
  Transmission Date: 20050107
  Serious: Yes (Life-Threatening, Hospitalization)
  Sender: FDA-Public Use
  Company Number: None

PATIENT
  Age: 70 Year
  Sex: Male
  Weight: 96.2 kg

DRUGS (16)
  1. PHENYTOIN [Suspect]
  2. RANITIDINE [Concomitant]
  3. DOCUSATE [Concomitant]
  4. LIDOCAINE [Concomitant]
  5. ANALGESIC BALM OINT [Concomitant]
  6. MILK OF MAGNESIA TAB [Concomitant]
  7. LUBRICATING EYE DROP [Concomitant]
  8. TERAZOSIN HCL [Concomitant]
  9. LISINOPRIL [Concomitant]
  10. ACETAMINOPHEN [Concomitant]
  11. LACTULOSE [Concomitant]
  12. PANCRELIPASE [Concomitant]
  13. IPRATROPIUM/ALBUTEROL INHALER [Concomitant]
  14. FLUNISOLIDE NASAL SOLN [Concomitant]
  15. HYDROCODONE 5.0MG/ACETAMINOPHEN [Concomitant]
  16. HYDROCHLOROTHIAZINE [Concomitant]

REACTIONS (4)
  - ASTHENIA [None]
  - ATAXIA [None]
  - LABORATORY TEST ABNORMAL [None]
  - LETHARGY [None]
